FAERS Safety Report 9458039 (Version 1)
Quarter: 2013Q3

REPORT INFORMATION
  Report Type: Spontaneous
  Country: US (occurrence: US)
  Receive Date: 20130814
  Receipt Date: 20130814
  Transmission Date: 20140515
  Serious: No
  Sender: FDA-Public Use
  Company Number: US-TEVA-425795USA

PATIENT
  Sex: Female

DRUGS (1)
  1. COPAXONE [Suspect]

REACTIONS (3)
  - Blood glucose increased [Not Recovered/Not Resolved]
  - Blood glucose decreased [Not Recovered/Not Resolved]
  - Pain [Not Recovered/Not Resolved]
